FAERS Safety Report 21482009 (Version 2)
Quarter: 2022Q4

REPORT INFORMATION
  Report Type: Spontaneous
  Country: FR (occurrence: FR)
  Receive Date: 20221020
  Receipt Date: 20221125
  Transmission Date: 20230113
  Serious: Yes (Other)
  Sender: FDA-Public Use
  Company Number: FR-AFSSAPS-PV20221417

PATIENT
  Age: 34 Year
  Sex: Female
  Weight: 110 kg

DRUGS (2)
  1. AMLODIPINE [Suspect]
     Active Substance: AMLODIPINE BESYLATE
     Indication: Hypertension
     Dosage: 10 MILLIGRAM, QD
     Route: 048
     Dates: start: 20211102
  2. EMTRICITABINE\RILPIVIRINE\TENOFOVIR DISOPROXIL FUMARATE [Suspect]
     Active Substance: EMTRICITABINE\RILPIVIRINE\TENOFOVIR DISOPROXIL FUMARATE
     Indication: HIV infection
     Dosage: 200 MILLIGRAM, QD, 1 TABLET 200/25/245MG
     Route: 048
     Dates: start: 20220720, end: 20220908

REACTIONS (1)
  - Systemic lupus erythematosus [Not Recovered/Not Resolved]

NARRATIVE: CASE EVENT DATE: 20220803
